FAERS Safety Report 7017864-8 (Version None)
Quarter: 2010Q3

REPORT INFORMATION
  Report Type: 
  Country: None (occurrence: None)
  Receive Date: 20100928
  Receipt Date: 20100916
  Transmission Date: 20110219
  Serious: No
  Sender: FDA-Public Use
  Company Number: US-RB-013853-10

PATIENT
  Age: 46 Year
  Sex: Female

DRUGS (1)
  1. DELSYM [Suspect]
     Dosage: TOOK THREE 30 ML DOSES IN 8 HOURS
     Route: 048
     Dates: start: 20100902

REACTIONS (2)
  - ACCIDENTAL OVERDOSE [None]
  - NO ADVERSE EVENT [None]
